FAERS Safety Report 14984332 (Version 4)
Quarter: 2018Q3

REPORT INFORMATION
  Report Type: Spontaneous
  Country: JP (occurrence: JP)
  Receive Date: 20180607
  Receipt Date: 20180808
  Transmission Date: 20181010
  Serious: Yes (Hospitalization)
  Sender: FDA-Public Use
  Company Number: JP-JNJFOC-20180603403

PATIENT
  Age: 65 Year
  Sex: Female

DRUGS (2)
  1. RHEUMATREX [Concomitant]
     Active Substance: METHOTREXATE SODIUM
     Indication: RHEUMATOID ARTHRITIS
     Route: 048
  2. SIMPONI [Suspect]
     Active Substance: GOLIMUMAB
     Indication: RHEUMATOID ARTHRITIS
     Route: 058
     Dates: start: 20170414, end: 20180510

REACTIONS (1)
  - Meningitis noninfective [Recovered/Resolved]

NARRATIVE: CASE EVENT DATE: 20180601
